FAERS Safety Report 10570108 (Version 2)
Quarter: 2014Q4

REPORT INFORMATION
  Report Type: Spontaneous
  Country: FR (occurrence: FR)
  Receive Date: 20141107
  Receipt Date: 20141107
  Transmission Date: 20150529
  Serious: Yes (Death)
  Sender: FDA-Public Use
  Company Number: FR-TEVA-477254ISR

PATIENT
  Age: 78 Year
  Sex: Female

DRUGS (1)
  1. CAPECITABINE TEVA 500MG [Suspect]
     Active Substance: CAPECITABINE
     Indication: BONE CANCER
     Dosage: 2300 MILLIGRAM DAILY; BY FEEDING TUBE/ IN THE MORNING AND IN THE EVENING
     Dates: start: 20140414

REACTIONS (2)
  - Bone cancer [Fatal]
  - Incorrect route of drug administration [Unknown]

NARRATIVE: CASE EVENT DATE: 20140414
